FAERS Safety Report 6854896-4 (Version None)
Quarter: 2010Q3

REPORT INFORMATION
  Report Type: 
  Country: None (occurrence: None)
  Receive Date: 20100717
  Receipt Date: 20080226
  Transmission Date: 20110219
  Serious: Yes (Other)
  Sender: FDA-Public Use
  Company Number: US-PFIZER INC-2007100382

PATIENT
  Sex: Female
  Weight: 86.3 kg

DRUGS (2)
  1. CHANTIX [Suspect]
     Indication: SMOKING CESSATION THERAPY
     Route: 048
     Dates: start: 20071101, end: 20071114
  2. CHANTIX [Suspect]
     Indication: TOBACCO ABUSE

REACTIONS (4)
  - DEPRESSION [None]
  - HYPOTHYROIDISM [None]
  - SUICIDAL IDEATION [None]
  - WEIGHT INCREASED [None]
